FAERS Safety Report 4886965-2 (Version None)
Quarter: 2006Q1

REPORT INFORMATION
  Report Type: 
  Country: None (occurrence: None)
  Receive Date: 20060118
  Receipt Date: 20060110
  Transmission Date: 20060701
  Serious: Yes (Death)
  Sender: FDA-Public Use
  Company Number: CERZ-10963

PATIENT
  Age: 74 Year
  Sex: Male

DRUGS (2)
  1. CEREZYME [Suspect]
     Indication: GAUCHER'S DISEASE
     Dosage: 1400 UNITS Q2WKS IV
     Route: 042
     Dates: start: 19970501, end: 20041208
  2. CEREZYME [Suspect]
     Indication: GAUCHER'S DISEASE
     Dosage: 1400 UNITS Q2WKS IV
     Route: 042
     Dates: start: 19940831, end: 19950101

REACTIONS (1)
  - DEATH [None]
